FAERS Safety Report 14516347 (Version 2)
Quarter: 2018Q2

REPORT INFORMATION
  Report Type: Spontaneous
  Country: JP (occurrence: JP)
  Receive Date: 20180211
  Receipt Date: 20180403
  Transmission Date: 20180711
  Serious: Yes (Death)
  Sender: FDA-Public Use
  Company Number: JP-BEH-2018087659

PATIENT
  Age: 36 Year
  Sex: Male

DRUGS (2)
  1. DOBUTAMINE                         /00493402/ [Concomitant]
     Route: 065
  2. HUMAN IMMUNOGLOBULIN (NC) [Suspect]
     Active Substance: HUMAN IMMUNOGLOBULIN G
     Indication: MYOCARDITIS
     Dosage: 1000 MG/KG, QD
     Route: 042

REACTIONS (1)
  - Drug ineffective for unapproved indication [Fatal]
